FAERS Safety Report 9364744 (Version 2)
Quarter: 2013Q3

REPORT INFORMATION
  Report Type: Spontaneous
  Country: AT (occurrence: AT)
  Receive Date: 20130624
  Receipt Date: 20130711
  Transmission Date: 20140515
  Serious: Yes (Other)
  Sender: FDA-Public Use
  Company Number: AT-B.I. PHARMACEUTICALS,INC./RIDGEFIELD-2013-AP-00497AP

PATIENT
  Age: 59 Year
  Sex: Male
  Weight: 108 kg

DRUGS (4)
  1. PRADAXA [Suspect]
     Indication: KNEE ARTHROPLASTY
     Dosage: 300 MG
     Dates: start: 20130319, end: 20130503
  2. ENALAPRIL [Concomitant]
     Dates: start: 201010
  3. SIMVASTATIN [Concomitant]
     Dates: start: 201103
  4. BEZAFIBRATE [Concomitant]
     Dates: start: 201205

REACTIONS (2)
  - Deep vein thrombosis [Not Recovered/Not Resolved]
  - Off label use [Not Recovered/Not Resolved]
